FAERS Safety Report 17873469 (Version 1)
Quarter: 2020Q2

REPORT INFORMATION
  Report Type: Spontaneous
  Country: ZA (occurrence: ZA)
  Receive Date: 20200609
  Receipt Date: 20200609
  Transmission Date: 20200714
  Serious: Yes (Hospitalization, Other)
  Sender: FDA-Public Use
  Company Number: ZA-LUPIN PHARMACEUTICALS INC.-2020-02681

PATIENT
  Sex: Male

DRUGS (8)
  1. AMLOC TABLETS [Suspect]
     Active Substance: AMLODIPINE BESYLATE
     Indication: HYPERTENSION
     Dosage: 10 MILLIGRAM
     Route: 048
  2. MENGEN [Suspect]
     Active Substance: METFORMIN HYDROCHLORIDE
     Indication: DIABETES MELLITUS
     Dosage: 1000 MILLIGRAM
     Route: 048
  3. CIPLA-SIMVASTATIN [Suspect]
     Active Substance: SIMVASTATIN
     Indication: BLOOD CHOLESTEROL ABNORMAL
     Dosage: 20 MILLIGRAM
     Route: 048
  4. TREPILINE [AMITRIPTYLINE HYDROCHLORIDE] [Suspect]
     Active Substance: AMITRIPTYLINE HYDROCHLORIDE
     Indication: STRESS
     Dosage: 25 MILLIGRAM
     Route: 048
  5. ENAP TABLET [Suspect]
     Active Substance: ENALAPRIL MALEATE
     Indication: HYPERTENSION
     Dosage: 10 MILLIGRAM
     Route: 048
  6. GLAMARYL [Suspect]
     Active Substance: GLIMEPIRIDE
     Indication: DIABETES MELLITUS
     Dosage: 2 MILLIGRAM
     Route: 048
  7. DISPRIN [Suspect]
     Active Substance: ASPIRIN
     Indication: ANTICOAGULANT THERAPY
     Dosage: 300 MILLIGRAM
     Route: 048
  8. SPIRACTIN [SPIRONOLACTONE] [Suspect]
     Active Substance: SPIRONOLACTONE
     Indication: DIURETIC THERAPY
     Dosage: 25 MILLIGRAM
     Route: 048

REACTIONS (1)
  - Cerebrovascular accident [Unknown]
